FAERS Safety Report 20245679 (Version 2)
Quarter: 2022Q1

REPORT INFORMATION
  Report Type: Spontaneous
  Country: JP (occurrence: JP)
  Receive Date: 20211229
  Receipt Date: 20220114
  Transmission Date: 20220423
  Serious: Yes (Other)
  Sender: FDA-Public Use
  Company Number: JP-NOVARTISPH-NVSJ2021JP021269

PATIENT
  Age: 15 Year
  Sex: Male

DRUGS (1)
  1. PAZOPANIB [Suspect]
     Active Substance: PAZOPANIB
     Indication: Infantile fibromatosis
     Dosage: UNK
     Route: 065

REACTIONS (2)
  - Neoplasm progression [Unknown]
  - Product use in unapproved indication [Unknown]
